FAERS Safety Report 15117053 (Version 1)
Quarter: 2018Q3

REPORT INFORMATION
  Report Type: Spontaneous
  Country: US (occurrence: US)
  Receive Date: 20180706
  Receipt Date: 20180706
  Transmission Date: 20181010
  Serious: Yes (Other)
  Sender: FDA-Public Use
  Company Number: US-SA-2018SA179245

PATIENT
  Age: 37 Year
  Sex: Female
  Weight: 136.5 kg

DRUGS (3)
  1. PRENATAL VITAMINS [ASCORBIC ACID;BETACAROTENE;CALCIUM SULFATE;COLECALC [Concomitant]
     Dosage: 1 DF
     Route: 048
     Dates: start: 201709
  2. CEREZYME [Suspect]
     Active Substance: IMIGLUCERASE
     Dosage: 6000 U
     Dates: end: 201806
  3. VPRIV [Concomitant]
     Active Substance: VELAGLUCERASE ALFA
     Dosage: 45 UNITS/KG
     Dates: start: 20170927

REACTIONS (2)
  - Exposure during pregnancy [Unknown]
  - Gestational hypertension [Unknown]

NARRATIVE: CASE EVENT DATE: 20180409
